FAERS Safety Report 9938392 (Version 2)
Quarter: 2014Q1

REPORT INFORMATION
  Report Type: Report from Study
  Country: US (occurrence: US)
  Receive Date: 20140303
  Receipt Date: 20140303
  Transmission Date: 20141002
  Serious: No
  Sender: FDA-Public Use
  Company Number: US-ABBVIE-12P-163-1010822-00

PATIENT
  Age: 18 Year
  Sex: Female

DRUGS (8)
  1. HUMIRA [Suspect]
     Indication: CROHN^S DISEASE
     Route: 058
     Dates: start: 2011
  2. HUMIRA [Suspect]
     Route: 058
  3. NALTREXONE [Concomitant]
     Indication: CROHN^S DISEASE
     Dates: start: 201207
  4. PROTONIX [Concomitant]
     Indication: PRODUCT USED FOR UNKNOWN INDICATION
  5. SEASONAL BIRTH CONTROL [Concomitant]
     Indication: CONTRACEPTION
  6. PEPCID [Concomitant]
     Indication: PRODUCT USED FOR UNKNOWN INDICATION
  7. BENTYL [Concomitant]
     Indication: PRODUCT USED FOR UNKNOWN INDICATION
  8. NAPROXEN [Concomitant]
     Indication: PRODUCT USED FOR UNKNOWN INDICATION

REACTIONS (5)
  - Injection site extravasation [Not Recovered/Not Resolved]
  - Drug ineffective [Not Recovered/Not Resolved]
  - Injection site vesicles [Not Recovered/Not Resolved]
  - Crohn^s disease [Not Recovered/Not Resolved]
  - Device malfunction [Unknown]
